FAERS Safety Report 8544261-6 (Version None)
Quarter: 2012Q2

REPORT INFORMATION
  Report Type: 
  Country: None (occurrence: None)
  Receive Date: 20120416
  Receipt Date: 20090224
  Transmission Date: 20120825
  Serious: Yes (Hospitalization)
  Sender: FDA-Public Use
  Company Number: PHEH2009US02018

PATIENT
  Age: 85 Year
  Sex: Female

DRUGS (7)
  1. ADVAIR HFA [Concomitant]
  2. DIOVAN [Suspect]
     Indication: HYPERTENSION
     Dosage: ORAL
     Route: 048
     Dates: start: 20040101, end: 20090120
  3. ASPIRIN [Concomitant]
  4. CRESTOR [Concomitant]
  5. ACTONEL [Concomitant]
  6. PREMARIN [Suspect]
     Dosage: 1.25 MG, QD ; 0.3 MG, QD
     Dates: start: 19630101
  7. PREMARIN [Suspect]
     Dosage: 1.25 MG, QD ; 0.3 MG, QD
     Dates: end: 20090123

REACTIONS (3)
  - PRESYNCOPE [None]
  - DIZZINESS [None]
  - BLOOD PRESSURE DECREASED [None]
